FAERS Safety Report 7496794-1 (Version None)
Quarter: 2011Q2

REPORT INFORMATION
  Report Type: 
  Country: None (occurrence: None)
  Receive Date: 20110523
  Receipt Date: 20110509
  Transmission Date: 20111010
  Serious: Yes (Other)
  Sender: FDA-Public Use
  Company Number: CN-JNJFOC-20110403600

PATIENT
  Age: 45 Year
  Sex: Male
  Weight: 80 kg

DRUGS (4)
  1. REMICADE [Suspect]
     Route: 042
     Dates: start: 20110404, end: 20110404
  2. REMICADE [Suspect]
     Dosage: 100 MG/W0,2/INJECTION; START DATE ALSO REPORTED AS 28-MAR-2011
     Route: 042
     Dates: start: 20110321
  3. REMICADE [Suspect]
     Indication: ANKYLOSING SPONDYLITIS
     Route: 042
     Dates: start: 20110504
  4. DEXAMETHASONE [Concomitant]
     Indication: PROPHYLAXIS
     Route: 042
     Dates: start: 20110321, end: 20110321

REACTIONS (2)
  - IRITIS [None]
  - DRUG INEFFECTIVE [None]
